FAERS Safety Report 9109649 (Version 1)
Quarter: 2013Q1

REPORT INFORMATION
  Report Type: Spontaneous
  Country: US (occurrence: US)
  Receive Date: 20130222
  Receipt Date: 20130222
  Transmission Date: 20140127
  Serious: No
  Sender: FDA-Public Use
  Company Number: US-PFIZER INC-2013062276

PATIENT
  Age: 50 Year
  Sex: Female
  Weight: 118 kg

DRUGS (4)
  1. PREMPRO [Suspect]
     Indication: OESTROGEN DEFICIENCY
     Dosage: 0.3/1.5 MG, 1X/DAY
     Dates: start: 2013
  2. AMBIEN [Concomitant]
     Indication: SLEEP DISORDER
     Dosage: UNK
  3. BENADRYL [Concomitant]
     Dosage: 25 MG, UNK
  4. VITAMIN D [Concomitant]
     Dosage: 1000 MG, 1X/DAY

REACTIONS (6)
  - Weight decreased [Unknown]
  - Vulvovaginal dryness [Unknown]
  - Insomnia [Unknown]
  - Hypertrichosis [Unknown]
  - Alopecia [Unknown]
  - Weight increased [Unknown]
